FAERS Safety Report 14879002 (Version 1)
Quarter: 2018Q2

REPORT INFORMATION
  Report Type: Spontaneous
  Country: IE (occurrence: IE)
  Receive Date: 20180511
  Receipt Date: 20180511
  Transmission Date: 20180711
  Serious: Yes (Hospitalization, Other)
  Sender: FDA-Public Use
  Company Number: IE-009507513-1804IRL007549

PATIENT
  Age: 56 Year
  Sex: Female
  Weight: 67 kg

DRUGS (6)
  1. AFATINIB [Concomitant]
     Active Substance: AFATINIB
     Indication: NON-SMALL CELL LUNG CANCER
     Dosage: UNK
     Dates: start: 20150727, end: 20160302
  2. TARCEVA [Concomitant]
     Active Substance: ERLOTINIB HYDROCHLORIDE
     Indication: NON-SMALL CELL LUNG CANCER
     Dosage: UNK
     Dates: start: 201611
  3. KEYTRUDA [Suspect]
     Active Substance: PEMBROLIZUMAB
     Indication: NON-SMALL CELL LUNG CANCER
     Dosage: 140 MG, Q3W
     Dates: start: 20170802, end: 20171229
  4. AFATINIB [Concomitant]
     Active Substance: AFATINIB
     Indication: RECURRENT CANCER
     Dosage: 30 MG, QD
     Route: 048
     Dates: start: 20180308, end: 20180322
  5. TARCEVA [Concomitant]
     Active Substance: ERLOTINIB HYDROCHLORIDE
     Indication: METASTASES TO CENTRAL NERVOUS SYSTEM
  6. CARBOPLATIN (+) PEMETREXED DISODIUM [Concomitant]
     Indication: NON-SMALL CELL LUNG CANCER
     Dosage: UNK
     Dates: start: 201702

REACTIONS (3)
  - Malignant neoplasm progression [Unknown]
  - Immune-mediated adverse reaction [Unknown]
  - Pneumonitis [Recovering/Resolving]

NARRATIVE: CASE EVENT DATE: 201712
